FAERS Safety Report 8429139-0 (Version None)
Quarter: 2012Q2

REPORT INFORMATION
  Report Type: 
  Country: None (occurrence: None)
  Receive Date: 20120612
  Receipt Date: 20120608
  Transmission Date: 20120825
  Serious: No
  Sender: FDA-Public Use
  Company Number: US-BAYER-2012-057568

PATIENT
  Sex: Male

DRUGS (2)
  1. PROPECIA [Concomitant]
  2. AVELOX [Suspect]
     Dosage: 500 MG, ONCE
     Route: 048
     Dates: start: 20120605, end: 20120607

REACTIONS (5)
  - PAIN IN EXTREMITY [None]
  - TENDON PAIN [None]
  - FATIGUE [None]
  - ARTHRALGIA [None]
  - MYALGIA [None]
